FAERS Safety Report 23569924 (Version 1)
Quarter: 2024Q1

REPORT INFORMATION
  Report Type: Spontaneous
  Country: GB (occurrence: GB)
  Receive Date: 20240227
  Receipt Date: 20240227
  Transmission Date: 20240409
  Serious: Yes (Other)
  Sender: FDA-Public Use
  Company Number: GB-CLINIGEN-GB-CLI-2024-009520

PATIENT

DRUGS (2)
  1. DEXRAZOXANE [Suspect]
     Active Substance: DEXRAZOXANE
     Indication: Extravasation
     Dosage: UNK
  2. DEXRAZOXANE [Suspect]
     Active Substance: DEXRAZOXANE
     Dosage: UNK

REACTIONS (3)
  - Breast injury [Unknown]
  - Product administration error [Unknown]
  - Drug ineffective [Unknown]
